FAERS Safety Report 19491066 (Version 1)
Quarter: 2021Q3

REPORT INFORMATION
  Report Type: Report from Study
  Country: US (occurrence: US)
  Receive Date: 20210705
  Receipt Date: 20210705
  Transmission Date: 20211014
  Serious: Yes (Hospitalization)
  Sender: FDA-Public Use
  Company Number: US-BIOGEN-2021BI01027109

PATIENT
  Sex: Female

DRUGS (2)
  1. VUMERITY [Suspect]
     Active Substance: DIROXIMEL FUMARATE
     Indication: MULTIPLE SCLEROSIS
     Dosage: 1?231 MG CAPSULE BY MOUTH TWICE DAILY FOR SEVEN DAYS , THEN 2?231 MG CAPSULE BY MOUTH TWICE DAILY
     Route: 048
  2. VUMERITY [Suspect]
     Active Substance: DIROXIMEL FUMARATE
     Dosage: 1?231 MG CAPSULE BY MOUTH TWICE DAILY FOR SEVEN DAYS , THEN 2?231 MG CAPSULE BY MOUTH TWICE DAILY
     Route: 048
     Dates: start: 202102

REACTIONS (1)
  - Central nervous system lesion [Unknown]
